FAERS Safety Report 8586702-4 (Version None)
Quarter: 2012Q3

REPORT INFORMATION
  Report Type: 
  Country: None (occurrence: None)
  Receive Date: 20120810
  Receipt Date: 20120629
  Transmission Date: 20120928
  Serious: Yes (Other)
  Sender: FDA-Public Use
  Company Number: FR-009507513-1112FRA00051

PATIENT

DRUGS (1)
  1. PROPECIA [Suspect]
     Dates: end: 20111101

REACTIONS (3)
  - MATERNAL EXPOSURE DURING PREGNANCY [None]
  - ABORTION INDUCED [None]
  - EXPOSURE VIA SEMEN [None]
